FAERS Safety Report 7596760-1 (Version None)
Quarter: 2011Q3

REPORT INFORMATION
  Report Type: 
  Country: None (occurrence: None)
  Receive Date: 20110708
  Receipt Date: 20110627
  Transmission Date: 20111222
  Serious: Yes (Other)
  Sender: FDA-Public Use
  Company Number: US-ASTELLAS-2011US003637

PATIENT

DRUGS (3)
  1. SPRYCEL [Suspect]
     Indication: LUNG ADENOCARCINOMA
     Dosage: 100 MG, UID/QD
     Route: 065
  2. SPRYCEL [Suspect]
     Dosage: 70 MG, BID
  3. ERLOTINIB HYDROCHLORIDE [Suspect]
     Indication: LUNG ADENOCARCINOMA
     Dosage: UNK MG, UID/QD
     Route: 048

REACTIONS (1)
  - PLEURAL EFFUSION [None]
